FAERS Safety Report 22020748 (Version 3)
Quarter: 2023Q4

REPORT INFORMATION
  Report Type: Spontaneous
  Country: US (occurrence: US)
  Receive Date: 20230222
  Receipt Date: 20231019
  Transmission Date: 20240110
  Serious: Yes (Other)
  Sender: FDA-Public Use
  Company Number: US-PFIZER INC-PV202300034637

PATIENT
  Age: 69 Year
  Sex: Male
  Weight: 99.79 kg

DRUGS (5)
  1. VYNDAMAX [Suspect]
     Active Substance: TAFAMIDIS
     Indication: Amyloidosis
     Dosage: 61 MG
     Dates: start: 202302
  2. CALCITRIOL [Concomitant]
     Active Substance: CALCITRIOL
     Dosage: TAKE FOR CALCIUM AS HIS THYROID AND PARATHYROID HAVE BEEN REMOVED. HE HAS BEEN ON IT 10 YEARS OR SO
     Dates: start: 2013
  3. LEVOTHYROXINE [Concomitant]
     Active Substance: LEVOTHYROXINE
     Dosage: BEEN ON IT 10 YEARS OR SO SINCE DOESN^T HAVE A THYROID
     Dates: start: 2013
  4. ATORVASTATIN [Concomitant]
     Active Substance: ATORVASTATIN
     Indication: Blood pressure abnormal
     Dosage: BEEN ON IT A LONG TIME MAYBE 15 YEARS
     Dates: start: 2008
  5. ASCORBIC ACID\ERGOCALCIFEROL\NIACINAMIDE\RETINOL\RIBOFLAVIN\THIAMINE [Concomitant]
     Active Substance: ASCORBIC ACID\ERGOCALCIFEROL\NIACINAMIDE\RETINOL\RIBOFLAVIN\THIAMINE
     Dosage: UNK

REACTIONS (3)
  - Parkinson^s disease [Unknown]
  - Dementia with Lewy bodies [Unknown]
  - COVID-19 [Unknown]

NARRATIVE: CASE EVENT DATE: 20230901
